FAERS Safety Report 6283792-9 (Version None)
Quarter: 2009Q3

REPORT INFORMATION
  Report Type: 
  Country: None (occurrence: None)
  Receive Date: 20090724
  Receipt Date: 20070605
  Transmission Date: 20100115
  Serious: Yes (Hospitalization, Other)
  Sender: FDA-Public Use
  Company Number: US-ASTRAZENECA-2006UW24529

PATIENT
  Age: 22777 Day
  Sex: Female
  Weight: 70.8 kg

DRUGS (21)
  1. SEROQUEL [Suspect]
     Indication: SCHIZOPHRENIA
     Route: 048
     Dates: start: 20031002, end: 20050313
  2. SEROQUEL [Suspect]
     Indication: PSYCHOTIC DISORDER
     Route: 048
     Dates: start: 20031002, end: 20050313
  3. SEROQUEL [Suspect]
     Indication: AGITATION
     Route: 048
     Dates: start: 20031002, end: 20050313
  4. SEROQUEL [Suspect]
     Indication: ANXIETY
     Route: 048
     Dates: start: 20031002, end: 20050313
  5. SEROQUEL [Suspect]
     Dosage: 25MG - 50 MG
     Route: 048
     Dates: start: 20030717
  6. SEROQUEL [Suspect]
     Dosage: 25MG - 50 MG
     Route: 048
     Dates: start: 20030717
  7. SEROQUEL [Suspect]
     Dosage: 25MG - 50 MG
     Route: 048
     Dates: start: 20030717
  8. SEROQUEL [Suspect]
     Dosage: 25MG - 50 MG
     Route: 048
     Dates: start: 20030717
  9. GEODON [Concomitant]
     Dates: start: 20011128, end: 20060201
  10. SYMBYAX [Concomitant]
     Dates: start: 19970624, end: 20030625
  11. DEPAKOTE [Concomitant]
     Dates: start: 20020224
  12. LISINOPRIL [Concomitant]
  13. LOVASTATIN [Concomitant]
  14. PLAVIX [Concomitant]
  15. LEVOXYL [Concomitant]
  16. ASPIRIN [Concomitant]
  17. METOPROLOL SUCCINATE [Concomitant]
  18. INSULIN [Concomitant]
  19. ATIVAN [Concomitant]
  20. SINEMET [Concomitant]
  21. LACTULOSE [Concomitant]

REACTIONS (9)
  - CEREBROVASCULAR ACCIDENT [None]
  - DIABETES MELLITUS [None]
  - LOSS OF CONSCIOUSNESS [None]
  - PNEUMONIA [None]
  - RENAL FAILURE ACUTE [None]
  - RENAL FAILURE CHRONIC [None]
  - URINARY INCONTINENCE [None]
  - URINARY RETENTION [None]
  - URINARY TRACT INFECTION [None]
